FAERS Safety Report 4682018-7 (Version None)
Quarter: 2005Q2

REPORT INFORMATION
  Report Type: 
  Country: None (occurrence: None)
  Receive Date: 20050606
  Receipt Date: 20050525
  Transmission Date: 20051028
  Serious: Yes (Hospitalization)
  Sender: FDA-Public Use
  Company Number: US-JNJFOC-20050303160

PATIENT
  Sex: Female
  Weight: 81.65 kg

DRUGS (16)
  1. REMICADE [Suspect]
     Indication: CROHN'S DISEASE
     Dosage: LAST  INFUSION ON 8-FEB-2005
     Route: 042
  2. LORAZEPAM [Concomitant]
  3. GLIPIZIDE [Concomitant]
  4. OSCAL [Concomitant]
  5. COZAAR [Concomitant]
  6. LIPITOR [Concomitant]
  7. RANITIDINE [Concomitant]
  8. LASIX [Concomitant]
  9. PRIMPRO [Concomitant]
  10. PRIMPRO [Concomitant]
     Dosage: 0.3MG - 11.5 MG
  11. AVANDIA [Concomitant]
  12. MOBIC [Concomitant]
  13. ATENOLOL [Concomitant]
  14. VITAMIN D [Concomitant]
  15. THERAGRAN M [Concomitant]
  16. THERAGRAN M [Concomitant]

REACTIONS (2)
  - CARDIAC FAILURE CONGESTIVE [None]
  - CORONARY ARTERY DISEASE [None]
